FAERS Safety Report 24341154 (Version 1)
Quarter: 2024Q3

REPORT INFORMATION
  Report Type: Spontaneous
  Country: US (occurrence: US)
  Receive Date: 20240919
  Receipt Date: 20240919
  Transmission Date: 20241017
  Serious: No
  Sender: BAUSCH AND LOMB
  Company Number: US-BAUSCHBL-2024BNL033194

PATIENT
  Age: 65 Year
  Sex: Female

DRUGS (1)
  1. XIIDRA [Suspect]
     Active Substance: LIFITEGRAST
     Indication: Dry eye
     Route: 047

REACTIONS (12)
  - Eyelid margin crusting [Unknown]
  - Eye discharge [Unknown]
  - Vision blurred [Recovered/Resolved]
  - Exposure via skin contact [Unknown]
  - Wrong technique in product usage process [Unknown]
  - Product closure removal difficult [Unknown]
  - Accidental exposure to product [Unknown]
  - Product delivery mechanism issue [Unknown]
  - Product container issue [Unknown]
  - Multiple use of single-use product [Unknown]
  - Product complaint [Unknown]
  - Product use complaint [Unknown]

NARRATIVE: CASE EVENT DATE: 20240601
